FAERS Safety Report 15970075 (Version 1)
Quarter: 2019Q1

REPORT INFORMATION
  Report Type: Report from Study
  Country: US (occurrence: US)
  Receive Date: 20190215
  Receipt Date: 20190215
  Transmission Date: 20190418
  Serious: Yes (Hospitalization, Other)
  Sender: FDA-Public Use
  Company Number: US-AMAG PHARMACEUTICALS, INC.-AMAG201801168

PATIENT

DRUGS (3)
  1. IRON [Concomitant]
     Active Substance: IRON
     Indication: PREGNANCY
     Dosage: UNK, QD
     Route: 065
     Dates: end: 20180312
  2. PRENATAL VITAMINS [Concomitant]
     Active Substance: VITAMINS
     Indication: PREGNANCY
     Dosage: UNK, QD
     Route: 065
     Dates: end: 20180312
  3. MAKENA [Suspect]
     Active Substance: HYDROXYPROGESTERONE CAPROATE
     Indication: PREMATURE DELIVERY
     Dosage: 250 NG/ML, WEEKLY
     Route: 030
     Dates: start: 20171121, end: 20180306

REACTIONS (2)
  - Premature delivery [Recovered/Resolved]
  - Placenta praevia haemorrhage [Recovered/Resolved]

NARRATIVE: CASE EVENT DATE: 20180225
